FAERS Safety Report 8471526-9 (Version None)
Quarter: 2012Q2

REPORT INFORMATION
  Report Type: 
  Country: None (occurrence: None)
  Receive Date: 20120627
  Receipt Date: 20120619
  Transmission Date: 20120825
  Serious: Yes (Death)
  Sender: FDA-Public Use
  Company Number: IT-JNJFOC-20120611540

PATIENT

DRUGS (4)
  1. METHOTREXATE [Suspect]
     Indication: BONE SARCOMA
     Dosage: 120 G/M2
     Route: 065
  2. CISPLATIN [Suspect]
     Indication: BONE SARCOMA
     Route: 065
  3. IFOSFAMIDE [Suspect]
     Indication: BONE SARCOMA
     Dosage: 30 G/M2, 44 WEEKS
     Route: 065
  4. DOXORUBICIN HCL [Suspect]
     Indication: BONE SARCOMA
     Route: 042

REACTIONS (2)
  - OFF LABEL USE [None]
  - TOXICITY TO VARIOUS AGENTS [None]
